FAERS Safety Report 5118431-3 (Version None)
Quarter: 2006Q3

REPORT INFORMATION
  Report Type: 
  Country: None (occurrence: None)
  Receive Date: 20060926
  Receipt Date: 20060918
  Transmission Date: 20061208
  Serious: Yes (Death)
  Sender: FDA-Public Use
  Company Number: US200603002405

PATIENT
  Age: 47 Year
  Sex: Female
  Weight: 104.3 kg

DRUGS (3)
  1. ZYPREXA [Suspect]
     Dosage: 10 MG
     Dates: end: 20030701
  2. ZYPREXA [Suspect]
     Dosage: 10 MG
     Dates: start: 19990101
  3. VENLAFAXINE HCL [Concomitant]

REACTIONS (1)
  - DIABETES MELLITUS [None]
